FAERS Safety Report 8553610-4 (Version None)
Quarter: 2012Q3

REPORT INFORMATION
  Report Type: 
  Country: None (occurrence: None)
  Receive Date: 20120731
  Receipt Date: 20120717
  Transmission Date: 20120928
  Serious: Yes (Hospitalization)
  Sender: FDA-Public Use
  Company Number: IT-PFIZER INC-2012182839

PATIENT
  Age: 81 Year
  Sex: Female

DRUGS (10)
  1. GABAPENTIN [Concomitant]
     Dosage: UNK
  2. MS CONTIN [Suspect]
     Dosage: 20 MG, DAILY
     Route: 048
     Dates: start: 20120727
  3. OMEPRAZOLE [Concomitant]
     Dosage: UNK
  4. BISOPROLOL HEMIFUMARATE/HYDROCHLOROTHIAZIDE [Concomitant]
     Dosage: UNK
  5. FERROFOLIN [Concomitant]
     Dosage: UNK
  6. ORAMORPH SR [Suspect]
     Dosage: 12 GTT, DAILY
     Route: 048
     Dates: start: 20120727
  7. RIVOTRIL [Concomitant]
     Dosage: UNK
  8. FEMARA [Concomitant]
     Dosage: UNK
  9. MS CONTIN [Suspect]
     Indication: PAIN
     Dosage: 20 MG, DAILY
     Route: 048
     Dates: start: 20110101, end: 20120619
  10. ORAMORPH SR [Suspect]
     Indication: PAIN
     Dosage: 12 GTT, DAILY
     Route: 048
     Dates: start: 20120101, end: 20120619

REACTIONS (3)
  - RENAL FAILURE ACUTE [None]
  - RESPIRATORY DEPRESSION [None]
  - LETHARGY [None]
